FAERS Safety Report 19257404 (Version 1)
Quarter: 2021Q2

REPORT INFORMATION
  Report Type: Spontaneous
  Country: CN (occurrence: CN)
  Receive Date: 20210513
  Receipt Date: 20210513
  Transmission Date: 20210717
  Serious: Yes (Hospitalization, Other)
  Sender: FDA-Public Use
  Company Number: CN-BAXTER-2021BAX010506

PATIENT
  Age: 10 Year
  Sex: Male
  Weight: 40 kg

DRUGS (8)
  1. 0.9% SODIUM CHLORIDE INJECTION [Suspect]
     Active Substance: SODIUM CHLORIDE
     Indication: MEDICATION DILUTION
     Dosage: DAY 1: DEXAMETHASONE 5MG + METHOTREXATE 12.5MG + CYTARABINE 35MG + SALINE 5ML (TRIPLE DRUG THERAPY)
     Route: 037
     Dates: start: 20210122, end: 20210122
  2. SODIUM CHLORIDE. [Suspect]
     Active Substance: SODIUM CHLORIDE
     Indication: MEDICATION DILUTION
     Dosage: DAY 1: ENDOXAN 1.27 G + SODIUM CHLORIDE 250 ML
     Route: 042
     Dates: start: 20210122, end: 20210122
  3. ENDOXAN [Suspect]
     Active Substance: CYCLOPHOSPHAMIDE
     Indication: ACUTE LYMPHOCYTIC LEUKAEMIA
     Dosage: DAY 1: ENDOXAN 1.27 G + SODIUM CHLORIDE 250 ML
     Route: 042
     Dates: start: 20210122, end: 20210122
  4. CYTOSAR [Suspect]
     Active Substance: CYTARABINE
     Indication: ACUTE LYMPHOCYTIC LEUKAEMIA
     Dosage: DAY 1?7.50MG/(M2.TIMES)
     Route: 058
     Dates: start: 20210122, end: 20210128
  5. DEXAMETHASONE. [Suspect]
     Active Substance: DEXAMETHASONE
     Indication: PROPHYLAXIS
     Dosage: DAY 1: DEXAMETHASONE 5MG + METHOTREXATE 12.5MG + CYTARABINE 35MG + SALINE 5ML (TRIPLE DRUG THERAPY)
     Route: 037
     Dates: start: 20210122, end: 20210122
  6. METHOTREXATE. [Suspect]
     Active Substance: METHOTREXATE
     Indication: PROPHYLAXIS
     Dosage: DAY 1: DEXAMETHASONE 5MG + METHOTREXATE 12.5MG + CYTARABINE 35MG + SALINE 5ML (TRIPLE DRUG THERAPY)
     Route: 037
     Dates: start: 20210122, end: 20210122
  7. MERCAPTOPURINE. [Suspect]
     Active Substance: MERCAPTOPURINE
     Indication: ACUTE LYMPHOCYTIC LEUKAEMIA
     Dosage: DOSAGE FORM: TABLET; DAY 1?7, 40MG/(M2.D)
     Route: 048
     Dates: start: 20210122, end: 20210228
  8. CYTARABINE. [Suspect]
     Active Substance: CYTARABINE
     Indication: PROPHYLAXIS
     Dosage: DAY 1: DEXAMETHASONE 5MG + METHOTREXATE 12.5MG + CYTARABINE 35MG + SALINE 5ML (TRIPLE DRUG THERAPY)
     Route: 037
     Dates: start: 20210122, end: 20210122

REACTIONS (3)
  - Myelosuppression [Recovering/Resolving]
  - Sepsis [Unknown]
  - Muscle abscess [Recovering/Resolving]

NARRATIVE: CASE EVENT DATE: 20210201
